APPROVED DRUG PRODUCT: VANCOMYCIN HYDROCHLORIDE
Active Ingredient: VANCOMYCIN HYDROCHLORIDE
Strength: EQ 10GM BASE/VIAL
Dosage Form/Route: INJECTABLE;INJECTION
Application: A205694 | Product #004 | TE Code: AP
Applicant: GLAND PHARMA LTD
Approved: Jun 6, 2023 | RLD: No | RS: No | Type: RX